FAERS Safety Report 5910094-X (Version None)
Quarter: 2008Q4

REPORT INFORMATION
  Report Type: 
  Country: None (occurrence: None)
  Receive Date: 20081007
  Receipt Date: 20070911
  Transmission Date: 20090506
  Serious: No
  Sender: FDA-Public Use
  Company Number: US-ASTRAZENECA-2007UW21409

PATIENT
  Age: 65 Year
  Sex: Female
  Weight: 88.9 kg

DRUGS (6)
  1. ARIMIDEX [Suspect]
     Indication: BREAST CANCER FEMALE
     Route: 048
     Dates: start: 20030901
  2. LIPITOR [Concomitant]
  3. ZETIA [Concomitant]
  4. POTASSIUM CHLORIDE [Concomitant]
  5. ATACAND [Concomitant]
     Route: 048
  6. TENORETIC 100 [Concomitant]
     Route: 048

REACTIONS (6)
  - ALOPECIA [None]
  - ARTHRALGIA [None]
  - FATIGUE [None]
  - ILL-DEFINED DISORDER [None]
  - LIBIDO DECREASED [None]
  - MUSCULOSKELETAL STIFFNESS [None]
